FAERS Safety Report 9926966 (Version 1)
Quarter: 2014Q1

REPORT INFORMATION
  Report Type: Spontaneous
  Country: US (occurrence: US)
  Receive Date: 20140226
  Receipt Date: 20140226
  Transmission Date: 20141002
  Serious: No
  Sender: FDA-Public Use
  Company Number: US-AMGEN-USASP2013088288

PATIENT
  Age: 63 Year
  Sex: Male
  Weight: 108.84 kg

DRUGS (12)
  1. ENBREL [Suspect]
     Indication: PSORIATIC ARTHROPATHY
     Dosage: 50 MG, QWK
     Route: 058
     Dates: start: 20131021
  2. OMEGA 3                            /01333901/ [Concomitant]
     Dosage: UNK
  3. VITAMIN C                          /00008001/ [Concomitant]
     Dosage: UNK
  4. VITAMIN D3 [Concomitant]
     Dosage: UNK
  5. CALCIUM [Concomitant]
     Dosage: UNK
  6. VITAMIN B COMPLEX [Concomitant]
     Dosage: UNK
  7. NORCO [Concomitant]
     Dosage: UNK
  8. LISINOPRIL [Concomitant]
     Dosage: UNK
  9. HYDROCHLOROTHIAZIDE [Concomitant]
     Dosage: UNK
  10. PROBIOTICS [Concomitant]
     Dosage: UNK
  11. CYMBALTA [Concomitant]
     Dosage: UNK
  12. ARAVA [Concomitant]
     Dosage: UNK

REACTIONS (5)
  - Throat irritation [Unknown]
  - Nasal congestion [Unknown]
  - Productive cough [Unknown]
  - Chest pain [Unknown]
  - Injection site urticaria [Unknown]
